FAERS Safety Report 7240866-3 (Version None)
Quarter: 2011Q1

REPORT INFORMATION
  Report Type: 
  Country: None (occurrence: None)
  Receive Date: 20110120
  Receipt Date: 20110120
  Transmission Date: 20110831
  Serious: No
  Sender: FDA-Public Use
  Company Number: None

PATIENT
  Sex: Male
  Weight: 61.2356 kg

DRUGS (1)
  1. ALBUTEROL SULATE [Suspect]
     Indication: COUGH
     Dosage: 2 MG. 3 TIMES/DAY
     Dates: start: 20101229, end: 20110102

REACTIONS (5)
  - HYPOAESTHESIA [None]
  - ASTHENIA [None]
  - POISONING [None]
  - DRUG INEFFECTIVE [None]
  - FEELING DRUNK [None]
